FAERS Safety Report 14330176 (Version 1)
Quarter: 2017Q4

REPORT INFORMATION
  Report Type: Spontaneous
  Country: MX (occurrence: MX)
  Receive Date: 20171227
  Receipt Date: 20171227
  Transmission Date: 20180321
  Serious: Yes (Other)
  Sender: FDA-Public Use
  Company Number: PHHY2017MX191662

PATIENT
  Age: 29 Year
  Sex: Male

DRUGS (1)
  1. GILENYA [Suspect]
     Active Substance: FINGOLIMOD HYDROCHLORIDE
     Indication: RELAPSING-REMITTING MULTIPLE SCLEROSIS
     Dosage: UNK
     Route: 065
     Dates: start: 201606

REACTIONS (12)
  - Antigliadin antibody positive [Unknown]
  - Pleocytosis [Unknown]
  - Malaise [Unknown]
  - Meningism [Unknown]
  - Parotid gland enlargement [Unknown]
  - Orchitis [Unknown]
  - Rubella antibody positive [Unknown]
  - Pyrexia [Unknown]
  - Headache [Unknown]
  - Vomiting [Unknown]
  - CSF glucose decreased [Unknown]
  - Decreased appetite [Unknown]
